FAERS Safety Report 25170427 (Version 3)
Quarter: 2025Q4

REPORT INFORMATION
  Report Type: Report from Study
  Country: IN (occurrence: IN)
  Receive Date: 20250408
  Receipt Date: 20251003
  Transmission Date: 20260118
  Serious: Yes (Other)
  Sender: NOVARTIS
  Company Number: IN-002147023-NVSC2025IN017845

PATIENT
  Age: 63 Year
  Sex: Female

DRUGS (7)
  1. RIBOCICLIB [Suspect]
     Active Substance: RIBOCICLIB
     Indication: Hormone receptor positive breast cancer
     Dosage: 400 MG, QD (FOR 15 DAYS)
     Route: 065
     Dates: start: 20241106
  2. RIBOCICLIB [Suspect]
     Active Substance: RIBOCICLIB
     Indication: Breast cancer metastatic
     Dosage: 400 MG, QD
     Route: 048
     Dates: start: 20241108
  3. RIBOCICLIB [Suspect]
     Active Substance: RIBOCICLIB
     Indication: Breast cancer stage IV
     Dosage: 400 MG, QD (FOR 15 DAYS)
     Route: 065
     Dates: start: 20241119
  4. RIBOCICLIB [Suspect]
     Active Substance: RIBOCICLIB
     Dosage: 400 MG, QD, X 21 DAYS (THEN STOP FOR 1 WEEK)
     Route: 065
     Dates: start: 20241218, end: 20250108
  5. RIBOCICLIB [Suspect]
     Active Substance: RIBOCICLIB
     Dosage: 2 DOSAGE FORM, QD (DUE TO SOME PROBLEM PATIENT TAKE MEDICINE 10-15 DAYS)
     Route: 065
  6. RIBOCICLIB [Suspect]
     Active Substance: RIBOCICLIB
     Dosage: 400 MG, QD X 21 DAYS
     Route: 048
  7. RIBOCICLIB [Suspect]
     Active Substance: RIBOCICLIB
     Dosage: 400 MG, QD, 21 DAYS (THEN STOP FOR 1 WEEK) X 2 MONTHS
     Route: 048

REACTIONS (10)
  - Hypothyroidism [Unknown]
  - Cytopenia [Unknown]
  - Breast mass [Unknown]
  - Eastern Cooperative Oncology Group performance status abnormal [Unknown]
  - Skin lesion [Unknown]
  - Ill-defined disorder [Unknown]
  - White blood cell count decreased [Unknown]
  - Haemoglobin decreased [Unknown]
  - Pleural disorder [Unknown]
  - Off label use [Unknown]

NARRATIVE: CASE EVENT DATE: 20241216
